FAERS Safety Report 5027555-0 (Version None)
Quarter: 2006Q2

REPORT INFORMATION
  Report Type: 
  Country: None (occurrence: None)
  Receive Date: 20060616
  Receipt Date: 20051021
  Transmission Date: 20061013
  Serious: Yes (Hospitalization)
  Sender: FDA-Public Use
  Company Number: ES-BRISTOL-MYERS SQUIBB COMPANY-13153077

PATIENT
  Age: 48 Year
  Sex: Female

DRUGS (4)
  1. DIDANOSINE [Suspect]
     Indication: HIV INFECTION
     Route: 048
     Dates: start: 20020709, end: 20051014
  2. TENOFOVIR [Suspect]
     Indication: HIV INFECTION
     Route: 048
     Dates: start: 20020709, end: 20051014
  3. KALETRA [Suspect]
     Indication: HIV INFECTION
     Dosage: 133/33 MG
     Route: 048
     Dates: start: 20020626, end: 20051014
  4. SEPTRA [Concomitant]
     Dates: start: 20050317, end: 20051014

REACTIONS (1)
  - METABOLIC ACIDOSIS [None]
